FAERS Safety Report 9543896 (Version 1)
Quarter: 2013Q3

REPORT INFORMATION
  Report Type: Spontaneous
  Country: IT (occurrence: IT)
  Receive Date: 20130923
  Receipt Date: 20130923
  Transmission Date: 20140515
  Serious: Yes (Hospitalization)
  Sender: FDA-Public Use
  Company Number: IT-TEVA-432707ISR

PATIENT
  Age: 52 Year
  Sex: Female

DRUGS (3)
  1. CITALOPRAM [Suspect]
     Dosage: 560 MILLIGRAM DAILY;
     Route: 048
     Dates: start: 20130623, end: 20130623
  2. DIAZEPAM [Suspect]
     Dosage: 20 ML DAILY; SOLUTION FOR ORAL DROPS
     Route: 048
     Dates: start: 20130623, end: 20130623
  3. QUETIAPINA FUMARATO [Suspect]
     Dosage: 4000 MILLIGRAM DAILY;
     Route: 048
     Dates: start: 20130623, end: 20130623

REACTIONS (4)
  - Loss of consciousness [Recovering/Resolving]
  - Suicide attempt [Recovering/Resolving]
  - Sopor [Recovering/Resolving]
  - Drug abuse [Recovering/Resolving]
